FAERS Safety Report 24998001 (Version 2)
Quarter: 2025Q4

REPORT INFORMATION
  Report Type: Spontaneous
  Country: US (occurrence: US)
  Receive Date: 20250222
  Receipt Date: 20251210
  Transmission Date: 20260118
  Serious: No
  Sender: SANOFI AVENTIS
  Company Number: US-SA-2025SA044622

PATIENT
  Age: 13 Year
  Sex: Male
  Weight: 37.19 kg

DRUGS (1)
  1. DUPIXENT [Suspect]
     Active Substance: DUPILUMAB
     Indication: Eosinophilic oesophagitis
     Dosage: 300 MG, QW
     Route: 058
     Dates: start: 20241023

REACTIONS (4)
  - Nasal congestion [Unknown]
  - Eosinophilic oesophagitis [Unknown]
  - Product dose omission issue [Unknown]
  - Oropharyngeal pain [Unknown]
